FAERS Safety Report 25895099 (Version 2)
Quarter: 2025Q4

REPORT INFORMATION
  Report Type: Spontaneous
  Country: GB (occurrence: GB)
  Receive Date: 20251008
  Receipt Date: 20251013
  Transmission Date: 20260117
  Serious: Yes (Hospitalization)
  Sender: MYLAN
  Company Number: GB-MYLANLABS-2025M1084809

PATIENT
  Age: 79 Year
  Sex: Female

DRUGS (1)
  1. CLOZARIL [Suspect]
     Active Substance: CLOZAPINE
     Indication: Schizophrenia
     Dosage: 62.5 MILLIGRAM, QD
     Dates: start: 20060522, end: 20250927

REACTIONS (10)
  - Chest pain [Recovered/Resolved]
  - Vomiting [Recovered/Resolved]
  - Gastric dilatation [Recovered/Resolved]
  - Abdominal pain [Unknown]
  - Confusional state [Unknown]
  - Dyspnoea [Recovered/Resolved]
  - Lacrimation increased [Unknown]
  - Decreased interest [Unknown]
  - Dysarthria [Unknown]
  - Heart rate increased [Unknown]
